FAERS Safety Report 4503322-9 (Version None)
Quarter: 2004Q4

REPORT INFORMATION
  Report Type: 
  Country: None (occurrence: None)
  Receive Date: 20041112
  Receipt Date: 20041101
  Transmission Date: 20050328
  Serious: Yes (Hospitalization)
  Sender: FDA-Public Use
  Company Number: 210139

PATIENT
  Sex: Female

DRUGS (1)
  1. ACTILYSE (ALTEPLASE) PWDR + SOLVENT, INFUSION SOLN [Suspect]
     Indication: PHLEBOTHROMBOSIS
     Dosage: SEE IMAGE
     Route: 042

REACTIONS (6)
  - BLOOD FIBRINOGEN INCREASED [None]
  - CHYLOTHORAX [None]
  - DISEASE RECURRENCE [None]
  - GASTROOESOPHAGEAL REFLUX DISEASE [None]
  - OESOPHAGEAL STENOSIS [None]
  - PROCEDURAL COMPLICATION [None]
